FAERS Safety Report 18704111 (Version 1)
Quarter: 2021Q1

REPORT INFORMATION
  Report Type: Spontaneous
  Country: CN (occurrence: CN)
  Receive Date: 20210105
  Receipt Date: 20210105
  Transmission Date: 20210419
  Serious: Yes (Other)
  Sender: FDA-Public Use
  Company Number: CN-PFIZER INC-2020520467

PATIENT
  Age: 58 Year
  Sex: Male
  Weight: 70 kg

DRUGS (1)
  1. LIPITOR [Suspect]
     Active Substance: ATORVASTATIN CALCIUM
     Indication: CEREBRAL INFARCTION
     Dosage: 20 MG, 1X/DAY
     Route: 048
     Dates: start: 20201113, end: 20201125

REACTIONS (7)
  - Blood alkaline phosphatase increased [Unknown]
  - Blood fibrinogen increased [Unknown]
  - Hepatic function abnormal [Recovering/Resolving]
  - Activated partial thromboplastin time shortened [Unknown]
  - Bilirubin conjugated increased [Unknown]
  - Thrombin time shortened [Unknown]
  - Blood albumin decreased [Unknown]

NARRATIVE: CASE EVENT DATE: 20201114
